FAERS Safety Report 21033481 (Version 1)
Quarter: 2022Q3

REPORT INFORMATION
  Report Type: Other
  Country: None (occurrence: US)
  Receive Date: 20220701
  Receipt Date: 20220701
  Transmission Date: 20221026
  Serious: Yes (Hospitalization)
  Sender: FDA-Public Use
  Company Number: US-CHEMI SPA-2130484

PATIENT
  Age: 24 Month
  Sex: Female

DRUGS (2)
  1. DECITABINE [Suspect]
     Active Substance: DECITABINE
     Indication: Myeloid leukaemia
  2. VORINOSTAT [Suspect]
     Active Substance: VORINOSTAT

REACTIONS (2)
  - Vascular device infection [Unknown]
  - Drug ineffective [Unknown]
